FAERS Safety Report 23236611 (Version 1)
Quarter: 2023Q4

REPORT INFORMATION
  Report Type: Spontaneous
  Country: FR (occurrence: FR)
  Receive Date: 20231128
  Receipt Date: 20231128
  Transmission Date: 20240109
  Serious: Yes (Hospitalization)
  Sender: FDA-Public Use
  Company Number: None

PATIENT
  Age: 87 Year
  Sex: Female
  Weight: 49 kg

DRUGS (3)
  1. NEORAL [Suspect]
     Active Substance: CYCLOSPORINE
     Indication: Focal segmental glomerulosclerosis
     Dosage: 50 MG
     Route: 048
     Dates: start: 20220701
  2. RAMIPRIL [Suspect]
     Active Substance: RAMIPRIL
     Indication: Glomerulonephritis
     Dosage: 2 DOSAGE FORM
     Route: 048
     Dates: start: 20210301
  3. IRBESARTAN [Suspect]
     Active Substance: IRBESARTAN
     Indication: Glomerulonephritis
     Dosage: 300 MG
     Route: 048
     Dates: start: 20210301

REACTIONS (2)
  - Tongue oedema [Recovered/Resolved]
  - Subarachnoid haemorrhage [Recovered/Resolved]

NARRATIVE: CASE EVENT DATE: 20230915
